FAERS Safety Report 21399650 (Version 2)
Quarter: 2023Q4

REPORT INFORMATION
  Report Type: Report from Study
  Country: US (occurrence: US)
  Receive Date: 20221001
  Receipt Date: 20231026
  Transmission Date: 20240109
  Serious: Yes (Hospitalization, Other)
  Sender: FDA-Public Use
  Company Number: US-ABBVIE-22K-163-4397155-00

PATIENT
  Age: 64 Year
  Sex: Male

DRUGS (7)
  1. IMBRUVICA [Suspect]
     Active Substance: IBRUTINIB
     Indication: Non-Hodgkin^s lymphoma
     Route: 048
     Dates: start: 20211117, end: 202209
  2. IMBRUVICA [Suspect]
     Active Substance: IBRUTINIB
     Indication: Non-Hodgkin^s lymphoma
     Route: 048
     Dates: start: 202209, end: 2023
  3. MODERNA COVID-19 VACCINE [Concomitant]
     Active Substance: ELASOMERAN
     Indication: COVID-19 immunisation
     Dosage: TIME INTERVAL: 1 TOTAL: FIRST DOSE
     Route: 030
     Dates: start: 20210301, end: 20210301
  4. MODERNA COVID-19 VACCINE [Concomitant]
     Active Substance: ELASOMERAN
     Indication: COVID-19 immunisation
     Dosage: TIME INTERVAL: 1 TOTAL: SECOND DOSE
     Route: 030
     Dates: start: 20210328, end: 20210328
  5. MODERNA COVID-19 VACCINE [Concomitant]
     Active Substance: ELASOMERAN
     Indication: COVID-19 immunisation
     Dosage: TIME INTERVAL: 1 TOTAL: BOOSTER DOSE
     Route: 030
     Dates: start: 20211220, end: 20211220
  6. BRUKINSA [Concomitant]
     Active Substance: ZANUBRUTINIB
     Indication: Product used for unknown indication
     Route: 065
     Dates: end: 2023
  7. BRUKINSA [Concomitant]
     Active Substance: ZANUBRUTINIB
     Indication: Product used for unknown indication
     Dosage: LAST ADMIN DATE WAS 2023
     Route: 065
     Dates: start: 2023

REACTIONS (8)
  - Spinal operation [Recovered/Resolved]
  - Loss of personal independence in daily activities [Unknown]
  - Prostatomegaly [Unknown]
  - Back pain [Unknown]
  - Dysuria [Unknown]
  - Knee arthroplasty [Unknown]
  - Spinal operation [Unknown]
  - Melanocytic naevus [Unknown]

NARRATIVE: CASE EVENT DATE: 20220901
